FAERS Safety Report 5723302-5 (Version None)
Quarter: 2008Q2

REPORT INFORMATION
  Report Type: 
  Country: None (occurrence: None)
  Receive Date: 20080430
  Receipt Date: 20080221
  Transmission Date: 20081010
  Serious: No
  Sender: FDA-Public Use
  Company Number: US-ASTRAZENECA-2008UW03680

PATIENT
  Age: 62 Year
  Sex: Male
  Weight: 104.3 kg

DRUGS (10)
  1. NEXIUM [Suspect]
     Indication: GASTROOESOPHAGEAL REFLUX DISEASE
     Route: 048
  2. NEXIUM [Suspect]
     Route: 048
  3. NEXIUM [Suspect]
     Route: 048
  4. WARFIN [Concomitant]
  5. HYDROCHLOROTHIAZIDE [Concomitant]
  6. METOPROLOL TARTRATE [Concomitant]
  7. DILTIAZEM [Concomitant]
  8. LIPITOR [Concomitant]
  9. ASPIRIN [Concomitant]
  10. TUMS [Concomitant]

REACTIONS (2)
  - ATRIAL FIBRILLATION [None]
  - GASTROOESOPHAGEAL REFLUX DISEASE [None]
